FAERS Safety Report 6328937-7 (Version None)
Quarter: 2009Q3

REPORT INFORMATION
  Report Type: 
  Country: None (occurrence: None)
  Receive Date: 20090826
  Receipt Date: 20090821
  Transmission Date: 20100115
  Serious: Yes (Other)
  Sender: FDA-Public Use
  Company Number: US-BAYER-200926884NA

PATIENT
  Age: 29 Year
  Sex: Female
  Weight: 44 kg

DRUGS (1)
  1. MIRENA [Suspect]
     Indication: CONTRACEPTION
     Route: 015
     Dates: start: 20060615, end: 20090814

REACTIONS (4)
  - ABDOMINAL PAIN LOWER [None]
  - IUCD COMPLICATION [None]
  - IUD MIGRATION [None]
  - VAGINAL HAEMORRHAGE [None]
